FAERS Safety Report 26140759 (Version 2)
Quarter: 2025Q4

REPORT INFORMATION
  Report Type: Spontaneous
  Country: US (occurrence: US)
  Receive Date: 20251210
  Receipt Date: 20251211
  Transmission Date: 20260118
  Serious: No
  Sender: NOVARTIS
  Company Number: US-002147023-NVSC2025US189458

PATIENT
  Sex: Male

DRUGS (1)
  1. RHAPSIDO [Suspect]
     Active Substance: REMIBRUTINIB
     Indication: Urticaria chronic
     Dosage: 25 MG, BID
     Route: 048

REACTIONS (1)
  - Contusion [Unknown]
